FAERS Safety Report 18397448 (Version 2)
Quarter: 2020Q4

REPORT INFORMATION
  Report Type: Spontaneous
  Country: JP (occurrence: JP)
  Receive Date: 20201019
  Receipt Date: 20201203
  Transmission Date: 20210114
  Serious: Yes (Other)
  Sender: FDA-Public Use
  Company Number: NVSJ2020JP010313

PATIENT
  Sex: Female

DRUGS (1)
  1. FEMARA [Suspect]
     Active Substance: LETROZOLE
     Indication: INFERTILITY
     Dosage: UNK
     Route: 048
     Dates: end: 202010

REACTIONS (3)
  - Abscess [Unknown]
  - Concomitant disease aggravated [Unknown]
  - Pain [Unknown]

NARRATIVE: CASE EVENT DATE: 202010
